FAERS Safety Report 5348938-5 (Version None)
Quarter: 2007Q2

REPORT INFORMATION
  Report Type: 
  Country: None (occurrence: None)
  Receive Date: 20070607
  Receipt Date: 20070529
  Transmission Date: 20071010
  Serious: Yes (Other)
  Sender: FDA-Public Use
  Company Number: GB-JNJFOC-20070506764

PATIENT
  Age: 41 Year
  Sex: Male

DRUGS (2)
  1. LEVOFLOXACIN [Suspect]
     Indication: PELVIC PAIN
     Route: 048
  2. LEVOFLOXACIN [Suspect]
     Indication: EPIDIDYMITIS
     Route: 048

REACTIONS (2)
  - OEDEMA PERIPHERAL [None]
  - PAIN [None]
